FAERS Safety Report 4312717-8 (Version None)
Quarter: 2004Q1

REPORT INFORMATION
  Report Type: 
  Country: None (occurrence: None)
  Receive Date: 20040302
  Receipt Date: 20031202
  Transmission Date: 20041129
  Serious: No
  Sender: FDA-Public Use
  Company Number: 701367

PATIENT
  Age: 73 Year
  Sex: Female

DRUGS (3)
  1. AMEVIVE [Suspect]
     Indication: PSORIASIS
     Dosage: 15 MG QW IM
     Route: 030
     Dates: start: 20031113, end: 20031201
  2. CARDIZEM [Concomitant]
  3. EVISTA [Concomitant]

REACTIONS (3)
  - ANAEMIA [None]
  - HAEMATOCRIT DECREASED [None]
  - HAEMOGLOBIN DECREASED [None]
